FAERS Safety Report 8997632 (Version 3)
Quarter: 2013Q2

REPORT INFORMATION
  Report Type: Spontaneous
  Country: US (occurrence: US)
  Receive Date: 20130104
  Receipt Date: 20130625
  Transmission Date: 20140414
  Serious: Yes (Hospitalization, Other)
  Sender: FDA-Public Use
  Company Number: US-009507513-1203USA02004

PATIENT
  Sex: Female

DRUGS (11)
  1. FOSAMAX [Suspect]
     Indication: OSTEOPOROSIS
     Dosage: 70 MG, UNK
     Route: 048
     Dates: end: 2005
  2. FOSAMAX [Suspect]
     Dosage: 10 UNK, QD
     Route: 048
  3. ALENDRONATE SODIUM [Suspect]
     Dosage: 70 MG, UNK
  4. PREVACID [Concomitant]
     Dosage: 30 DF, QD
     Dates: start: 1990, end: 2010
  5. PREDNISONE [Concomitant]
     Indication: RHEUMATOID ARTHRITIS
     Dosage: 5 DF, QD
     Dates: start: 1990
  6. HUMIRA [Concomitant]
     Indication: RHEUMATOID ARTHRITIS
     Dosage: UNK
     Dates: start: 2003
  7. PREMARIN [Concomitant]
     Dosage: 0.9 DF, UNK
  8. METHOTREXATE [Concomitant]
     Dosage: 500 DF, QW
     Route: 048
  9. ATENOLOL [Concomitant]
     Dosage: 50 DF, QD
  10. LISINOPRIL [Concomitant]
     Dosage: 10 DF, QD
  11. REMICADE [Concomitant]
     Dosage: Q8W
     Route: 042

REACTIONS (19)
  - Femur fracture [Recovered/Resolved]
  - Intramedullary rod insertion [Unknown]
  - Fracture nonunion [Unknown]
  - Surgery [Unknown]
  - Femur fracture [Unknown]
  - Device breakage [Unknown]
  - Open reduction of fracture [Unknown]
  - Fall [Unknown]
  - Low turnover osteopathy [Unknown]
  - Adverse event [Unknown]
  - Viral pharyngitis [Unknown]
  - Hiatus hernia [Unknown]
  - Cataract [Unknown]
  - Bronchitis [Unknown]
  - Osteoarthritis [Unknown]
  - Spinal osteoarthritis [Unknown]
  - Device related infection [Unknown]
  - Medical device complication [Unknown]
  - Dyspepsia [Unknown]
